FAERS Safety Report 5864999-9 (Version None)
Quarter: 2008Q3

REPORT INFORMATION
  Report Type: 
  Country: None (occurrence: None)
  Receive Date: 20080829
  Receipt Date: 20080822
  Transmission Date: 20090109
  Serious: Yes (Other)
  Sender: FDA-Public Use
  Company Number: A0626585A

PATIENT
  Age: 40 Year
  Sex: Female

DRUGS (5)
  1. WELLBUTRIN XL [Suspect]
     Dosage: 300MG PER DAY
     Route: 048
     Dates: start: 20060301, end: 20061024
  2. MINOCIN [Concomitant]
  3. ALEVE [Concomitant]
  4. ASACOL [Concomitant]
  5. NEXIUM [Concomitant]

REACTIONS (7)
  - ADVERSE EVENT [None]
  - ENERGY INCREASED [None]
  - HEPATIC ENZYME INCREASED [None]
  - INSOMNIA [None]
  - OFF LABEL USE [None]
  - VISION BLURRED [None]
  - WEIGHT DECREASED [None]
